FAERS Safety Report 7814136-6 (Version None)
Quarter: 2011Q4

REPORT INFORMATION
  Report Type: 
  Country: None (occurrence: None)
  Receive Date: 20111014
  Receipt Date: 20110930
  Transmission Date: 20120403
  Serious: Yes (Other)
  Sender: FDA-Public Use
  Company Number: US-BAYER-2011-082109

PATIENT
  Age: 23 Year
  Sex: Female
  Weight: 65.306 kg

DRUGS (4)
  1. ALEVE-D SINUS + COLD [Concomitant]
     Dosage: 220 MG, UNK
     Route: 048
  2. DROSPIRENONE AND ETHINYL ESTRADIOL [Suspect]
     Indication: MENSTRUATION IRREGULAR
     Dosage: UNK
     Dates: start: 20040101
  3. YASMIN [Suspect]
     Indication: MENSTRUATION IRREGULAR
     Dosage: UNK
     Dates: start: 20040101
  4. EXCEDRIN (MIGRAINE) [Concomitant]
     Dosage: 250 MG, 250 MG, 65 MG
     Route: 048

REACTIONS (5)
  - BILIARY DYSKINESIA [None]
  - INJURY [None]
  - GALLBLADDER DISORDER [None]
  - GALLBLADDER INJURY [None]
  - CHOLECYSTITIS CHRONIC [None]
